FAERS Safety Report 8063904-7 (Version None)
Quarter: 2012Q1

REPORT INFORMATION
  Report Type: 
  Country: None (occurrence: None)
  Receive Date: 20120123
  Receipt Date: 20120113
  Transmission Date: 20120608
  Serious: Yes (Hospitalization)
  Sender: FDA-Public Use
  Company Number: US-UCBSA-046777

PATIENT
  Age: 32 Year
  Sex: Female
  Weight: 62.6 kg

DRUGS (22)
  1. CIMZIA [Suspect]
     Indication: CROHN'S DISEASE
     Route: 058
     Dates: start: 20110101, end: 20110101
  2. SEVELLA [Concomitant]
     Dosage: 1 TABLET TWICE DAILY
  3. FENTANYL-100 [Concomitant]
     Dosage: 25MCG EVERY 72 HOURS
  4. MESALAMINE [Concomitant]
     Indication: CROHN'S DISEASE
     Dates: start: 20110702
  5. ATIVAN [Concomitant]
  6. LOPRESSOR [Concomitant]
     Dosage: 25 MG, HALF TABLET, TWICE DAILY
  7. LIBRIUM [Concomitant]
     Dates: start: 20111001
  8. OXYCODONE HCL [Concomitant]
  9. COUMADIN [Concomitant]
  10. ONDANSETRON HCL [Concomitant]
     Dosage: 4 MG, TWICE DAILY AS NEEDED
     Route: 048
  11. BACLOFEN [Concomitant]
  12. FLAGYL [Concomitant]
     Indication: CROHN'S DISEASE
     Dates: start: 20110608
  13. CARAFATE [Concomitant]
     Dosage: 10 MG/ML 10 ML AT BEFORE MEALS (A.C) AND AT BEDTIME (H.C)
  14. PREDNISONE [Concomitant]
     Indication: CROHN'S DISEASE
     Dosage: 30 MG QE
     Dates: start: 20050201, end: 20110801
  15. PERCOCET [Concomitant]
  16. PROTONIX [Concomitant]
     Dosage: 40 MG
  17. K-TAB [Concomitant]
  18. HYDROCORTISONE [Concomitant]
  19. XOPENEX [Concomitant]
  20. DURAGESIC-100 [Concomitant]
     Dosage: 25 MCG EVERY 72 HOURS
     Route: 062
  21. VALTREX [Concomitant]
     Dosage: TOTAL DAILY DOSE: 1 G
  22. FOLIC ACID [Concomitant]
     Dosage: TOTAL DAILY DOSE: 1 MG

REACTIONS (4)
  - ABDOMINAL PAIN [None]
  - SEPSIS [None]
  - HYPOTENSION [None]
  - DEHYDRATION [None]
